FAERS Safety Report 4891984-6 (Version None)
Quarter: 2006Q1

REPORT INFORMATION
  Report Type: 
  Country: None (occurrence: None)
  Receive Date: 20060123
  Receipt Date: 20060110
  Transmission Date: 20060701
  Serious: Yes (Life-Threatening, Hospitalization)
  Sender: FDA-Public Use
  Company Number: GXKR2006NL00475

PATIENT
  Age: 69 Year
  Sex: Male

DRUGS (7)
  1. CITALOPRAM (NGX) (CITALOPRAM) FILM-COATED TABLET, 40MG [Suspect]
     Indication: ANXIETY
     Dosage: 40 MG QD
     Dates: start: 20040513
  2. METFORMIN HCL [Concomitant]
  3. SELOKEEN ZOC (METOPROLOL SUCCINATE) [Concomitant]
  4. PLAVIX (CLOPIDOGREL SUFLATE) [Concomitant]
  5. THYRAX DUOTAB (LEVOTHYROXINE SODIUM) [Concomitant]
  6. CRESTOR [Concomitant]
  7. PANTOPRAZOLE SODIUM [Concomitant]

REACTIONS (6)
  - DEPRESSION [None]
  - HEADACHE [None]
  - METABOLIC DISORDER [None]
  - SOMNOLENCE [None]
  - VISION BLURRED [None]
  - WEIGHT INCREASED [None]
